FAERS Safety Report 18555235 (Version 6)
Quarter: 2021Q1

REPORT INFORMATION
  Report Type: Report from Study
  Country: US (occurrence: US)
  Receive Date: 20201127
  Receipt Date: 20210211
  Transmission Date: 20210419
  Serious: Yes (Hospitalization)
  Sender: FDA-Public Use
  Company Number: US-TAKEDA-2020TUS052997

PATIENT
  Age: 68 Year
  Sex: Female
  Weight: 121.9 kg

DRUGS (12)
  1. TEDUGLUTIDE [Suspect]
     Active Substance: TEDUGLUTIDE
     Indication: OSTEOARTHRITIS
     Dosage: 0.26 MILLILITER, QD
     Route: 058
  2. TEDUGLUTIDE [Suspect]
     Active Substance: TEDUGLUTIDE
     Dosage: 0.2600 (UNIT UNSPECIFIED), QD
     Route: 058
     Dates: start: 20191205
  3. TEDUGLUTIDE [Suspect]
     Active Substance: TEDUGLUTIDE
     Dosage: 0.2600 (UNIT UNSPECIFIED), QD
     Route: 058
     Dates: start: 20191205
  4. TEDUGLUTIDE [Suspect]
     Active Substance: TEDUGLUTIDE
     Indication: SHORT-BOWEL SYNDROME
     Dosage: 0.26 MILLILITER, QD
     Route: 058
  5. TEDUGLUTIDE [Suspect]
     Active Substance: TEDUGLUTIDE
     Dosage: 0.2600 (UNIT UNSPECIFIED), QD
     Route: 058
     Dates: start: 20191205
  6. TEDUGLUTIDE [Suspect]
     Active Substance: TEDUGLUTIDE
     Indication: SHORT-BOWEL SYNDROME
     Dosage: 0.26 MILLILITER, QD
     Route: 058
  7. TEDUGLUTIDE [Suspect]
     Active Substance: TEDUGLUTIDE
     Indication: SHORT-BOWEL SYNDROME
     Dosage: 0.26 MILLILITER, QD
     Route: 058
  8. TEDUGLUTIDE [Suspect]
     Active Substance: TEDUGLUTIDE
     Indication: OSTEOARTHRITIS
     Dosage: 0.26 MILLILITER, QD
     Route: 058
  9. TEDUGLUTIDE [Suspect]
     Active Substance: TEDUGLUTIDE
     Dosage: 0.2600 (UNIT UNSPECIFIED), QD
     Route: 058
     Dates: start: 20191205
  10. TEDUGLUTIDE [Suspect]
     Active Substance: TEDUGLUTIDE
     Indication: OSTEOARTHRITIS
     Dosage: 0.26 MILLILITER, QD
     Route: 058
  11. TEDUGLUTIDE [Suspect]
     Active Substance: TEDUGLUTIDE
     Indication: OSTEOARTHRITIS
     Dosage: 0.26 MILLILITER, QD
     Route: 058
  12. TEDUGLUTIDE [Suspect]
     Active Substance: TEDUGLUTIDE
     Indication: SHORT-BOWEL SYNDROME
     Dosage: 0.26 MILLILITER, QD
     Route: 058

REACTIONS (8)
  - Abdominal pain [Unknown]
  - COVID-19 [Unknown]
  - Gastrointestinal surgery [Not Recovered/Not Resolved]
  - Malaise [Unknown]
  - Pain [Unknown]
  - Diarrhoea [Unknown]
  - Illness [Unknown]
  - Vomiting [Unknown]

NARRATIVE: CASE EVENT DATE: 20201203
